FAERS Safety Report 8920206 (Version 1)
Quarter: 2012Q4

REPORT INFORMATION
  Report Type: 
  Country: FR (occurrence: FR)
  Receive Date: 20121122
  Receipt Date: 20121122
  Transmission Date: 20130627
  Serious: Yes (Disabling)
  Sender: FDA-Public Use
  Company Number: FR-ROCHE-1158602

PATIENT
  Age: 64 Year
  Sex: Female

DRUGS (3)
  1. AVASTIN [Suspect]
     Indication: COLON CANCER METASTATIC
     Route: 042
     Dates: start: 20120813
  2. IRINOTECAN [Suspect]
     Indication: COLON CANCER METASTATIC
     Route: 042
     Dates: start: 20120813, end: 20121104
  3. FLUOROURACILE [Suspect]
     Indication: COLON CANCER METASTATIC
     Route: 042
     Dates: start: 20120813

REACTIONS (2)
  - Dysphonia [Recovering/Resolving]
  - Vocal cord paralysis [Recovering/Resolving]
